FAERS Safety Report 9098860 (Version 1)
Quarter: 2013Q1

REPORT INFORMATION
  Report Type: Spontaneous
  Country: US (occurrence: US)
  Receive Date: 20130213
  Receipt Date: 20130213
  Transmission Date: 20140127
  Serious: Yes (Hospitalization)
  Sender: FDA-Public Use
  Company Number: US-BRISTOL-MYERS SQUIBB COMPANY-17359365

PATIENT
  Age: 13 Year
  Sex: Male

DRUGS (2)
  1. ABILIFY [Suspect]
  2. ZOLOFT [Concomitant]

REACTIONS (2)
  - Abnormal behaviour [Unknown]
  - Blood bilirubin increased [Unknown]
